FAERS Safety Report 9280618 (Version 1)
Quarter: 2013Q2

REPORT INFORMATION
  Report Type: Spontaneous
  Country: US (occurrence: US)
  Receive Date: 20130509
  Receipt Date: 20130509
  Transmission Date: 20140414
  Serious: Yes (Hospitalization)
  Sender: FDA-Public Use
  Company Number: US-AMGEN-USASP2013030907

PATIENT
  Sex: Female

DRUGS (2)
  1. PROLIA [Suspect]
     Indication: OSTEOPOROSIS POSTMENOPAUSAL
     Dosage: UNK
     Dates: start: 20111206
  2. PREDNISONE [Concomitant]
     Indication: POLYMYALGIA RHEUMATICA

REACTIONS (13)
  - Cardiac failure congestive [Unknown]
  - Renal failure [Unknown]
  - Nephrolithiasis [Unknown]
  - Rheumatoid arthritis [Unknown]
  - Urinary tract infection [Unknown]
  - Hypoacusis [Unknown]
  - Ear pain [Unknown]
  - Post herpetic neuralgia [Unknown]
  - Nuclear magnetic resonance imaging abnormal [Unknown]
  - Herpes zoster [Unknown]
  - Back pain [Unknown]
  - Mastoiditis [Unknown]
  - Pyrexia [Unknown]
